FAERS Safety Report 5285399-9 (Version None)
Quarter: 2007Q1

REPORT INFORMATION
  Report Type: 
  Country: None (occurrence: None)
  Receive Date: 20070328
  Receipt Date: 20070315
  Transmission Date: 20070707
  Serious: No
  Sender: FDA-Public Use
  Company Number: ST-2007-009620

PATIENT
  Age: 70 Year
  Sex: Female
  Weight: 33 kg

DRUGS (3)
  1. OLMETEC [Suspect]
     Indication: ESSENTIAL HYPERTENSION
     Dosage: 5 MG QD PO
     Route: 048
     Dates: start: 20061018, end: 20070131
  2. AMARYL [Concomitant]
  3. MEVALOTIN [Concomitant]

REACTIONS (1)
  - BLOOD PRESSURE DECREASED [None]
